FAERS Safety Report 9657960 (Version 2)
Quarter: 2013Q4

REPORT INFORMATION
  Report Type: Spontaneous
  Country: US (occurrence: US)
  Receive Date: 20131030
  Receipt Date: 20131104
  Transmission Date: 20140711
  Serious: No
  Sender: FDA-Public Use
  Company Number: US-BAXTER-2013BAX040249

PATIENT
  Age: 73 Year
  Sex: Female
  Weight: 46.36 kg

DRUGS (6)
  1. GAMMAGARD LIQUID [Suspect]
     Indication: IMMUNOGLOBULIN THERAPY
     Route: 042
     Dates: start: 201301
  2. GAMMAGARD LIQUID [Suspect]
     Indication: CHRONIC LYMPHOCYTIC LEUKAEMIA
  3. GAMMAGARD LIQUID [Suspect]
     Indication: BRONCHIECTASIS
  4. GAMMAGARD LIQUID [Suspect]
     Indication: BLOOD IMMUNOGLOBULIN G DECREASED
  5. AZITHROMYCIN [Concomitant]
     Indication: BRONCHIECTASIS
     Route: 048
     Dates: start: 2011
  6. ASPIRIN [Concomitant]
     Indication: PRODUCT USED FOR UNKNOWN INDICATION
     Route: 048

REACTIONS (4)
  - Energy increased [Not Recovered/Not Resolved]
  - Sputum discoloured [Unknown]
  - Therapeutic response unexpected [Not Recovered/Not Resolved]
  - Secretion discharge [Not Recovered/Not Resolved]
